FAERS Safety Report 25178856 (Version 1)
Quarter: 2025Q2

REPORT INFORMATION
  Report Type: Spontaneous
  Country: JP (occurrence: JP)
  Receive Date: 20250409
  Receipt Date: 20250409
  Transmission Date: 20250716
  Serious: Yes (Death)
  Sender: BAYER
  Company Number: JP-BAYER-2025A047864

PATIENT
  Age: 8 Decade
  Sex: Female

DRUGS (1)
  1. ADEMPAS [Suspect]
     Active Substance: RIOCIGUAT
     Indication: Pulmonary arterial hypertension
     Dosage: 2.0 MG, TID
     Route: 048

REACTIONS (1)
  - Systemic scleroderma [Fatal]

NARRATIVE: CASE EVENT DATE: 20250301
